FAERS Safety Report 7831866-0 (Version None)
Quarter: 2011Q4

REPORT INFORMATION
  Report Type: 
  Country: None (occurrence: None)
  Receive Date: 20111021
  Receipt Date: 20111018
  Transmission Date: 20120403
  Serious: Yes (Hospitalization)
  Sender: FDA-Public Use
  Company Number: FI-AMGEN-FINSP2011005334

PATIENT
  Age: 85 Year
  Sex: Female

DRUGS (8)
  1. RELIFEX [Concomitant]
     Dosage: 1 G, UNK
  2. PROLIA [Suspect]
     Indication: OSTEOPOROSIS
     Dosage: 60 MG, Q6MO
     Route: 058
     Dates: start: 20100701
  3. NITROSID [Concomitant]
     Dosage: 10 MG, BID
  4. FLUTICASONE PROPIONATE/SALMETEROL [Concomitant]
  5. LYRICA [Concomitant]
     Dosage: 150 MG, BID
  6. DAIVOBET [Concomitant]
  7. FLUTICASONE PROPIONATE [Concomitant]
  8. CALCICHEW D3 FORTE [Concomitant]
     Dosage: UNK

REACTIONS (2)
  - MALAISE [None]
  - LISTERIOSIS [None]
